FAERS Safety Report 24196952 (Version 2)
Quarter: 2025Q3

REPORT INFORMATION
  Report Type: Report from Study
  Country: KR (occurrence: KR)
  Receive Date: 20240810
  Receipt Date: 20250731
  Transmission Date: 20251020
  Serious: Yes (Hospitalization, Other)
  Sender: TAKEDA
  Company Number: KR-TAKEDA-2024TUS079865

PATIENT
  Age: 60 Year
  Sex: Male
  Weight: 83.5 kg

DRUGS (21)
  1. VEDOLIZUMAB [Suspect]
     Active Substance: VEDOLIZUMAB
     Indication: Colitis ulcerative
  2. CEFOTAXIME [Concomitant]
     Active Substance: CEFOTAXIME SODIUM
     Indication: Infection prophylaxis
     Dates: start: 20230615, end: 20230615
  3. METRONIDAZOLE [Concomitant]
     Active Substance: METRONIDAZOLE
     Indication: Infection prophylaxis
     Dates: start: 20230615, end: 20230615
  4. HARNAL [Concomitant]
     Active Substance: TAMSULOSIN HYDROCHLORIDE
     Dosage: 2 MILLIGRAM, QD
     Dates: start: 20230618, end: 20230625
  5. SUPRAX [Concomitant]
     Active Substance: CEFIXIME
     Indication: Infection prophylaxis
     Dosage: 100 MILLIGRAM, BID
     Dates: start: 20230618, end: 20230621
  6. Flasinyl [Concomitant]
     Indication: Infection prophylaxis
     Dosage: UNK UNK, TID
     Dates: start: 20230618, end: 20230621
  7. GASTER [Concomitant]
     Active Substance: FAMOTIDINE
     Indication: Infection prophylaxis
     Dosage: 20 MILLIGRAM, BID
     Dates: start: 20230618, end: 20230621
  8. ACETAMINOPHEN\TRAMADOL [Concomitant]
     Active Substance: ACETAMINOPHEN\TRAMADOL
     Indication: Analgesic therapy
     Dosage: UNK UNK, TID
     Dates: start: 20230618, end: 20230621
  9. Norzyme [Concomitant]
     Indication: Dyspepsia
     Dosage: UNK UNK, TID
     Dates: start: 20230618, end: 20230628
  10. PROBIOTICS NOS [Concomitant]
     Active Substance: PROBIOTICS NOS
     Indication: Infection prophylaxis
     Dosage: UNK UNK, TID
     Dates: start: 20230618, end: 20230628
  11. MESALAMINE [Concomitant]
     Active Substance: MESALAMINE
     Dosage: 4800 MILLIGRAM, QD
     Dates: start: 20220914, end: 20230810
  12. Purinetone [Concomitant]
     Dosage: 25 MILLIGRAM, QD
     Dates: start: 20221123
  13. Gastiin cr [Concomitant]
     Dosage: 15 MILLIGRAM, QD
     Dates: start: 20221123, end: 20230810
  14. Solondo [Concomitant]
     Dosage: 45 MILLIGRAM, QD
     Dates: start: 20230104, end: 20230201
  15. Solondo [Concomitant]
     Dates: start: 20230216, end: 20230301
  16. Solondo [Concomitant]
     Dosage: 5 MILLIGRAM, QD
     Dates: start: 20230412, end: 20230426
  17. Phazyme complex [Concomitant]
     Dosage: UNK UNK, TID
     Dates: start: 20230510, end: 20230810
  18. Lopmin [Concomitant]
     Dosage: 2 MILLIGRAM, QD
     Dates: start: 20230713, end: 20230810
  19. PENTASA [Concomitant]
     Active Substance: MESALAMINE
     Dosage: 4000 MILLIGRAM, QD
     Dates: start: 20230809
  20. ASACOL [Concomitant]
     Active Substance: MESALAMINE
  21. INFLIXIMAB [Concomitant]
     Active Substance: INFLIXIMAB

REACTIONS (1)
  - Appendicitis perforated [Recovered/Resolved]

NARRATIVE: CASE EVENT DATE: 20230615
